FAERS Safety Report 4917401-5 (Version None)
Quarter: 2006Q1

REPORT INFORMATION
  Report Type: 
  Country: None (occurrence: None)
  Receive Date: 20060221
  Receipt Date: 20060216
  Transmission Date: 20060701
  Serious: Yes (Life-Threatening)
  Sender: FDA-Public Use
  Company Number: CH-GLAXOSMITHKLINE-B0412818A

PATIENT
  Age: 30 Year
  Sex: Female
  Weight: 108 kg

DRUGS (5)
  1. ZINACEF [Suspect]
     Indication: PROPHYLAXIS
     Dosage: 1500MG SINGLE DOSE
     Route: 040
     Dates: start: 20060112, end: 20060112
  2. PAVULON [Concomitant]
     Indication: PREOPERATIVE CARE
     Dosage: 8MG SINGLE DOSE
     Route: 040
     Dates: start: 20060112, end: 20060112
  3. PENTOTHAL [Concomitant]
     Indication: PREOPERATIVE CARE
     Dosage: 400MG SINGLE DOSE
     Route: 040
     Dates: start: 20060112, end: 20060112
  4. FENTANYL CITRATE [Concomitant]
     Indication: PREOPERATIVE CARE
     Dosage: 100MG SINGLE DOSE
     Route: 040
     Dates: start: 20060112, end: 20060112
  5. SEVORANE [Concomitant]
     Indication: PREOPERATIVE CARE
     Dosage: 3%DS SINGLE DOSE
     Route: 055
     Dates: start: 20060112, end: 20060112

REACTIONS (6)
  - ANAPHYLACTIC SHOCK [None]
  - CROSS SENSITIVITY REACTION [None]
  - HYPOTENSION [None]
  - LARYNGEAL OEDEMA [None]
  - TYPE IV HYPERSENSITIVITY REACTION [None]
  - URTICARIA [None]
